FAERS Safety Report 18534766 (Version 1)
Quarter: 2020Q4

REPORT INFORMATION
  Report Type: Spontaneous
  Country: DE (occurrence: DE)
  Receive Date: 20201123
  Receipt Date: 20201123
  Transmission Date: 20210114
  Serious: Yes (Life-Threatening)
  Sender: FDA-Public Use
  Company Number: DE-ANIPHARMA-2020-DE-000284

PATIENT
  Age: 50 Year
  Sex: Female

DRUGS (5)
  1. EXEMESTANE. [Concomitant]
     Active Substance: EXEMESTANE
     Route: 065
  2. ZOMETA [Concomitant]
     Active Substance: ZOLEDRONIC ACID
     Dosage: EVERY THREE WEEKS / DOSE TEXT: 4 MG
     Route: 042
     Dates: start: 201511, end: 201701
  3. TAMOXIFEN [Concomitant]
     Active Substance: TAMOXIFEN
     Route: 065
  4. ANASTROZOLE. [Suspect]
     Active Substance: ANASTROZOLE
     Indication: PRODUCT USED FOR UNKNOWN INDICATION
     Route: 048
     Dates: start: 201511, end: 201701
  5. ERIBULIN MESYLATE [Concomitant]
     Active Substance: ERIBULIN MESYLATE
     Dates: start: 20170224, end: 20170909

REACTIONS (7)
  - Metastases to liver [Unknown]
  - Ascites [Unknown]
  - Metastases to lung [Unknown]
  - Metastases to bone [Unknown]
  - Condition aggravated [Unknown]
  - Paraneoplastic syndrome [Unknown]
  - Metastases to peritoneum [Unknown]

NARRATIVE: CASE EVENT DATE: 20180130
